FAERS Safety Report 9097887 (Version 1)
Quarter: 2013Q1

REPORT INFORMATION
  Report Type: Spontaneous
  Country: FR (occurrence: FR)
  Receive Date: 20130212
  Receipt Date: 20130212
  Transmission Date: 20140127
  Serious: Yes (Other)
  Sender: FDA-Public Use
  Company Number: FR-JNJFOC-20130204232

PATIENT
  Age: 35 Year
  Sex: Male

DRUGS (16)
  1. PHLOROGLUCINOL [Concomitant]
     Route: 065
  2. DELURSAN [Concomitant]
     Route: 065
  3. DORIBAX [Suspect]
     Indication: ANTIBIOTIC PROPHYLAXIS
     Route: 041
     Dates: start: 20121222, end: 20130102
  4. CIPROFLOXACIN [Suspect]
     Indication: ANTIBIOTIC PROPHYLAXIS
     Route: 042
     Dates: start: 20121205, end: 20121228
  5. CANCIDAS [Suspect]
     Indication: ANTIFUNGAL PROPHYLAXIS
     Route: 042
     Dates: start: 20121222, end: 20121231
  6. ACICLOVIR [Suspect]
     Indication: ANTIVIRAL PROPHYLAXIS
     Route: 065
     Dates: end: 20121231
  7. ZYVOXID [Suspect]
     Indication: ANTIBIOTIC PROPHYLAXIS
     Route: 042
     Dates: start: 20121211, end: 20130102
  8. HEPARIN SODIUM [Concomitant]
     Route: 065
  9. PHOCYTAN [Concomitant]
     Route: 065
  10. TRACE ELEMENTS [Concomitant]
     Route: 065
  11. INEXIUM [Concomitant]
     Route: 065
  12. POTASSIUM CHLORATE [Concomitant]
     Route: 065
  13. LARGACTIL [Concomitant]
     Route: 065
  14. CERNEVIT [Concomitant]
     Route: 065
  15. GELOX [Concomitant]
     Route: 065
  16. CICLOSPORIN [Concomitant]
     Route: 065

REACTIONS (2)
  - Hepatitis [Recovered/Resolved]
  - Encephalopathy [Recovered/Resolved]
